FAERS Safety Report 8158222-2 (Version None)
Quarter: 2012Q1

REPORT INFORMATION
  Report Type: 
  Country: None (occurrence: None)
  Receive Date: 20120223
  Receipt Date: 20120222
  Transmission Date: 20120608
  Serious: Yes (Hospitalization, Other)
  Sender: FDA-Public Use
  Company Number: US-ABBOTT-12P-163-0904840-00

PATIENT
  Sex: Female
  Weight: 67.192 kg

DRUGS (2)
  1. HUMIRA [Suspect]
     Indication: ANKYLOSING SPONDYLITIS
     Dates: start: 20110201, end: 20110301
  2. MULTI-VITAMINS [Concomitant]
     Indication: VITAMIN SUPPLEMENTATION

REACTIONS (10)
  - BLOOD POTASSIUM DECREASED [None]
  - INFLUENZA LIKE ILLNESS [None]
  - HYPERTENSION [None]
  - MIGRAINE [None]
  - BLOOD MAGNESIUM DECREASED [None]
  - ANKYLOSING SPONDYLITIS [None]
  - VOMITING [None]
  - DIARRHOEA [None]
  - NAUSEA [None]
  - PRE-ECLAMPSIA [None]
